FAERS Safety Report 6192071-X (Version None)
Quarter: 2009Q2

REPORT INFORMATION
  Report Type: 
  Country: None (occurrence: None)
  Receive Date: 20090515
  Receipt Date: 20090430
  Transmission Date: 20091009
  Serious: Yes (Other)
  Sender: FDA-Public Use
  Company Number: CL-GENENTECH-282976

PATIENT
  Age: 50 Year
  Sex: Female

DRUGS (1)
  1. MABTHERA [Suspect]
     Indication: RHEUMATOID ARTHRITIS
     Dosage: 1 UNK, 1/MONTH
     Route: 065
     Dates: start: 20081101, end: 20081201

REACTIONS (2)
  - BRONCHIAL CARCINOMA [None]
  - LUNG NEOPLASM [None]
